FAERS Safety Report 7000775-1 (Version None)
Quarter: 2010Q3

REPORT INFORMATION
  Report Type: 
  Country: None (occurrence: None)
  Receive Date: 20100920
  Receipt Date: 20100715
  Transmission Date: 20110219
  Serious: No
  Sender: FDA-Public Use
  Company Number: US-ASTRAZENECA-2009SE32640

PATIENT
  Age: 44 Year
  Sex: Female
  Weight: 59 kg

DRUGS (7)
  1. SEROQUEL [Suspect]
     Indication: ANXIETY
     Route: 048
     Dates: start: 20050701, end: 20070101
  2. SEROQUEL [Suspect]
     Indication: POST-TRAUMATIC STRESS DISORDER
     Route: 048
     Dates: start: 20050701, end: 20070101
  3. ABILIFY [Concomitant]
  4. GEODON [Concomitant]
  5. ZOLOFT [Concomitant]
     Dates: start: 20050101
  6. WELLBUTRIN [Concomitant]
     Dates: start: 20050101, end: 20100101
  7. TOPAMAX [Concomitant]

REACTIONS (9)
  - ADVERSE DRUG REACTION [None]
  - BLOOD CHOLESTEROL INCREASED [None]
  - BLOOD TRIGLYCERIDES INCREASED [None]
  - CONNECTIVE TISSUE DISORDER [None]
  - DYSKINESIA [None]
  - HYPERLIPIDAEMIA [None]
  - TREMOR [None]
  - TYPE 2 DIABETES MELLITUS [None]
  - WEIGHT INCREASED [None]
